FAERS Safety Report 16073480 (Version 6)
Quarter: 2019Q2

REPORT INFORMATION
  Report Type: Spontaneous
  Country: JP (occurrence: JP)
  Receive Date: 20190314
  Receipt Date: 20190619
  Transmission Date: 20190711
  Serious: Yes (Other)
  Sender: FDA-Public Use
  Company Number: JP-PFIZER INC-2019060380

PATIENT
  Age: 76 Year
  Sex: Female

DRUGS (2)
  1. LORBRENA [Suspect]
     Active Substance: LORLATINIB
     Dosage: UNK
     Dates: end: 2019
  2. LORBRENA [Suspect]
     Active Substance: LORLATINIB
     Dosage: UNK
     Dates: start: 20190422

REACTIONS (13)
  - Brain oedema [Unknown]
  - Pain in extremity [Unknown]
  - Low density lipoprotein increased [Not Recovered/Not Resolved]
  - Blood triglycerides increased [Not Recovered/Not Resolved]
  - Spinal pain [Unknown]
  - Hemiparesis [Unknown]
  - Decreased appetite [Unknown]
  - Neoplasm progression [Unknown]
  - Fall [Unknown]
  - Pyrexia [Unknown]
  - Femur fracture [Unknown]
  - Asthenia [Unknown]
  - Hypertension [Unknown]

NARRATIVE: CASE EVENT DATE: 201901
